FAERS Safety Report 19383282 (Version 1)
Quarter: 2021Q2

REPORT INFORMATION
  Report Type: Spontaneous
  Country: US (occurrence: US)
  Receive Date: 20210608
  Receipt Date: 20210608
  Transmission Date: 20210717
  Serious: Yes (Hospitalization, Other)
  Sender: FDA-Public Use
  Company Number: US-SUN PHARMACEUTICAL INDUSTRIES LTD-2021R1-299135

PATIENT
  Age: 17 Year
  Sex: Female

DRUGS (1)
  1. IBUPROFEN. [Suspect]
     Active Substance: IBUPROFEN
     Indication: PRODUCT USED FOR UNKNOWN INDICATION
     Dosage: 2000 MILLIGRAM/KILOGRAM
     Route: 065

REACTIONS (7)
  - Acidosis [Unknown]
  - Toxicity to various agents [Unknown]
  - Overdose [Unknown]
  - Seizure [Unknown]
  - Lethargy [Unknown]
  - Suicide attempt [Unknown]
  - Depressed level of consciousness [Unknown]
